FAERS Safety Report 5740169-X (Version None)
Quarter: 2008Q2

REPORT INFORMATION
  Report Type: 
  Country: None (occurrence: None)
  Receive Date: 20080516
  Receipt Date: 20080512
  Transmission Date: 20081010
  Serious: Yes (Death)
  Sender: FDA-Public Use
  Company Number: SK-BRISTOL-MYERS SQUIBB COMPANY-14187231

PATIENT
  Sex: Male

DRUGS (7)
  1. PACLITAXEL [Suspect]
     Indication: NEOPLASM
  2. CISPLATIN [Suspect]
     Indication: NEOPLASM
  3. ETOPOSIDE [Suspect]
     Indication: NEOPLASM
     Dosage: GIVEN ON DAY 1 THROUGH 5.
  4. BLEOMYCIN SULFATE [Suspect]
     Indication: NEOPLASM
     Dosage: GIVEN ON DAY 2, 8 + 15.
  5. DEXAMETHASONE [Concomitant]
     Indication: PREMEDICATION
  6. BISULEPIN HCL [Concomitant]
     Indication: PREMEDICATION
  7. RANITIDINE [Concomitant]
     Indication: PREMEDICATION

REACTIONS (3)
  - FEBRILE NEUTROPENIA [None]
  - MEGACOLON [None]
  - SEPTIC SHOCK [None]
